FAERS Safety Report 7799036-2 (Version None)
Quarter: 2011Q4

REPORT INFORMATION
  Report Type: 
  Country: None (occurrence: None)
  Receive Date: 20111006
  Receipt Date: 20110930
  Transmission Date: 20120403
  Serious: Yes (Death, Other)
  Sender: FDA-Public Use
  Company Number: US-AMGEN-USASP2011038992

PATIENT
  Age: 66 Year
  Sex: Female

DRUGS (5)
  1. CORTICOSTEROIDS [Concomitant]
     Indication: THROMBOCYTOPENIA
  2. NPLATE [Suspect]
     Indication: LARGE GRANULAR LYMPHOCYTOSIS
  3. NPLATE [Suspect]
     Indication: IDIOPATHIC THROMBOCYTOPENIC PURPURA
  4. ALEMTUZUMAB [Concomitant]
     Indication: CEREBRAL HAEMORRHAGE
  5. NPLATE [Suspect]
     Indication: THROMBOCYTOPENIA
     Dosage: 66 MUG, UNK
     Dates: start: 20100802

REACTIONS (3)
  - NEOPLASM MALIGNANT [None]
  - LARGE GRANULAR LYMPHOCYTOSIS [None]
  - PNEUMONIA [None]
